FAERS Safety Report 6927894-X (Version None)
Quarter: 2010Q3

REPORT INFORMATION
  Report Type: 
  Country: None (occurrence: None)
  Receive Date: 20100817
  Receipt Date: 20100811
  Transmission Date: 20110219
  Serious: Yes (Hospitalization)
  Sender: FDA-Public Use
  Company Number: FR-B.I. PHARMACEUTICALS,INC./RIDGEFIELD-2010-FF-00650FF

PATIENT
  Sex: Male

DRUGS (2)
  1. VIRAMUNE [Suspect]
     Indication: HIV INFECTION
     Route: 048
     Dates: start: 19970101
  2. TRUVADA [Suspect]
     Indication: HIV INFECTION
     Route: 048
     Dates: start: 19970424

REACTIONS (2)
  - PANCREATIC CYST [None]
  - PANCREATITIS [None]
